FAERS Safety Report 14988113 (Version 2)
Quarter: 2018Q2

REPORT INFORMATION
  Report Type: Spontaneous
  Country: US (occurrence: US)
  Receive Date: 20180608
  Receipt Date: 20180611
  Transmission Date: 20180711
  Serious: No
  Sender: FDA-Public Use
  Company Number: US-PFIZER INC-2018233046

PATIENT

DRUGS (1)
  1. EUCRISA [Suspect]
     Active Substance: CRISABOROLE
     Indication: DERMATITIS ATOPIC
     Dosage: 60 G, 2X/DAY

REACTIONS (7)
  - Hypoaesthesia oral [Unknown]
  - Application site swelling [Unknown]
  - Application site paraesthesia [Unknown]
  - Lip swelling [Unknown]
  - Application site hypoaesthesia [Unknown]
  - Application site irritation [Unknown]
  - Dermatitis contact [Unknown]

NARRATIVE: CASE EVENT DATE: 20180605
